FAERS Safety Report 10105117 (Version 2)
Quarter: 2014Q2

REPORT INFORMATION
  Report Type: Other
  Country: US (occurrence: US)
  Receive Date: 20140424
  Receipt Date: 20140611
  Transmission Date: 20141212
  Serious: Yes (Hospitalization, Other)
  Sender: FDA-Public Use
  Company Number: US-GSKPPD-2014GSK000637

PATIENT
  Age: 90 Year
  Sex: Female

DRUGS (6)
  1. AVANDIA [Suspect]
     Indication: DIABETES MELLITUS
     Route: 048
     Dates: start: 20051216
  2. LISINOPRIL [Concomitant]
  3. IMDUR [Concomitant]
  4. PLAVIX [Concomitant]
  5. TOPROL [Concomitant]
  6. CLONIDINE [Concomitant]

REACTIONS (1)
  - Transient ischaemic attack [Recovered/Resolved]
